FAERS Safety Report 17846685 (Version 1)
Quarter: 2020Q2

REPORT INFORMATION
  Report Type: Report from Study
  Country: KZ (occurrence: KZ)
  Receive Date: 20200601
  Receipt Date: 20200601
  Transmission Date: 20200714
  Serious: Yes (Hospitalization, Other)
  Sender: FDA-Public Use
  Company Number: KZ-TAKEDA-2020TUS023908

PATIENT
  Sex: Male
  Weight: 52 kg

DRUGS (5)
  1. FOLIC ACID. [Concomitant]
     Active Substance: FOLIC ACID
     Dosage: 5 MILLIGRAM
     Route: 048
     Dates: start: 201808, end: 202003
  2. VEDOLIZUMAB [Suspect]
     Active Substance: VEDOLIZUMAB
     Indication: THERAPY RESPONDER
     Dosage: 300 MILLIGRAM
     Route: 042
     Dates: start: 20190828, end: 20200407
  3. VEDOLIZUMAB [Suspect]
     Active Substance: VEDOLIZUMAB
     Indication: COLITIS ULCERATIVE
  4. SIMPONI [Suspect]
     Active Substance: GOLIMUMAB
     Indication: THERAPY RESPONDER
     Dosage: 50 MILLIGRAM
     Route: 058
     Dates: start: 20191206, end: 202003
  5. PENTASA [Suspect]
     Active Substance: MESALAMINE
     Indication: THERAPY RESPONDER
     Dosage: 3 MILLIGRAM
     Route: 048
     Dates: start: 2016

REACTIONS (2)
  - Large intestinal stenosis [Recovering/Resolving]
  - Intestinal obstruction [Recovering/Resolving]
